FAERS Safety Report 22068263 (Version 1)
Quarter: 2023Q1

REPORT INFORMATION
  Report Type: Spontaneous
  Country: JP (occurrence: JP)
  Receive Date: 20230307
  Receipt Date: 20230307
  Transmission Date: 20230417
  Serious: Yes (Hospitalization, Other)
  Sender: FDA-Public Use
  Company Number: JP-Accord-301553

PATIENT
  Age: 5 Year
  Sex: Male
  Weight: 15.1 kg

DRUGS (10)
  1. ONDANSETRON [Suspect]
     Active Substance: ONDANSETRON
     Indication: Procedural nausea
     Dosage: RECEIVED SAME DOSE AS PREVIOUS
     Route: 042
  2. OXYGEN [Concomitant]
     Active Substance: OXYGEN
     Indication: Maintenance of anaesthesia
  3. NITROUS OXIDE [Concomitant]
     Active Substance: NITROUS OXIDE
     Indication: Induction of anaesthesia
  4. SEVOFLURANE [Concomitant]
     Active Substance: SEVOFLURANE
     Indication: Induction of anaesthesia
  5. ROPIVACAINE [Concomitant]
     Active Substance: ROPIVACAINE
     Indication: Epidural anaesthesia
     Dosage: 1 ML/KG
     Route: 008
  6. ACETAMINOPHEN [Concomitant]
     Active Substance: ACETAMINOPHEN
     Indication: Postoperative analgesia
  7. REMIFENTANIL HYDROCHLORIDE [Concomitant]
     Active Substance: REMIFENTANIL HYDROCHLORIDE
     Indication: Maintenance of anaesthesia
  8. SEVOFLURANE [Concomitant]
     Active Substance: SEVOFLURANE
     Indication: Maintenance of anaesthesia
  9. ONDANSETRON [Suspect]
     Active Substance: ONDANSETRON
     Indication: Procedural vomiting
     Dosage: RECEIVED SAME DOSE AS PREVIOUS
     Route: 042
  10. REMIFENTANIL HYDROCHLORIDE [Concomitant]
     Active Substance: REMIFENTANIL HYDROCHLORIDE
     Indication: Maintenance of anaesthesia

REACTIONS (2)
  - Somnolence [Recovered/Resolved]
  - Slow response to stimuli [Recovered/Resolved]
